FAERS Safety Report 5707637-8 (Version None)
Quarter: 2008Q2

REPORT INFORMATION
  Report Type: 
  Country: None (occurrence: None)
  Receive Date: 20080416
  Receipt Date: 20080404
  Transmission Date: 20081010
  Serious: Yes (Hospitalization, Other)
  Sender: FDA-Public Use
  Company Number: US-PFIZER INC-2008029810

PATIENT
  Sex: Female
  Weight: 93 kg

DRUGS (8)
  1. LYRICA [Suspect]
     Indication: FIBROMYALGIA
     Dates: start: 20080101, end: 20080401
  2. LYRICA [Suspect]
     Indication: NEURALGIA
  3. CYMBALTA [Concomitant]
  4. METFORMIN HCL [Concomitant]
     Indication: DIABETES MELLITUS
  5. SIMVASTATIN [Concomitant]
     Indication: HYPERCHOLESTEROLAEMIA
  6. ATENOLOL [Concomitant]
     Dosage: DAILY DOSE:75MG
  7. HYDROCHLOROTHIAZIDE [Concomitant]
  8. MICARDIS [Concomitant]

REACTIONS (13)
  - ADVERSE DRUG REACTION [None]
  - ANTICHOLINERGIC SYNDROME [None]
  - ANXIETY [None]
  - HALLUCINATION [None]
  - HYPERHIDROSIS [None]
  - HYPERTENSION [None]
  - HYPERTONIA [None]
  - INSOMNIA [None]
  - NAUSEA [None]
  - NERVOUS SYSTEM DISORDER [None]
  - SEROTONIN SYNDROME [None]
  - TACHYCARDIA [None]
  - TREMOR [None]
